FAERS Safety Report 25764038 (Version 7)
Quarter: 2025Q4

REPORT INFORMATION
  Report Type: Spontaneous
  Country: KR (occurrence: KR)
  Receive Date: 20250905
  Receipt Date: 20251215
  Transmission Date: 20260118
  Serious: Yes (Death, Hospitalization)
  Sender: SANDOZ
  Company Number: KR-002147023-NVSC2025KR129884

PATIENT
  Age: 62 Year
  Sex: Male
  Weight: 66.4 kg

DRUGS (117)
  1. CYCLOPHOSPHAMIDE [Suspect]
     Active Substance: CYCLOPHOSPHAMIDE
     Indication: Follicular lymphoma
     Dosage: 440 MG
     Route: 042
     Dates: start: 20250206
  2. FLUDARABINE [Suspect]
     Active Substance: FLUDARABINE PHOSPHATE
     Indication: Chemotherapy
     Dosage: UNK (SOLUTION FOR INFUSION)
     Route: 042
  3. ACETPHEN PREMIX [Concomitant]
     Indication: Febrile neutropenia
     Dosage: UNK
     Route: 065
     Dates: start: 20250709, end: 20250710
  4. ACETPHEN PREMIX [Concomitant]
     Dosage: UNK
     Route: 065
     Dates: start: 20250719, end: 20250719
  5. ACETPHEN PREMIX [Concomitant]
     Dosage: UNK
     Route: 065
     Dates: start: 20250723, end: 20250804
  6. ACETPHEN PREMIX [Concomitant]
     Dosage: UNK
     Route: 065
     Dates: start: 20250723
  7. Aclova [Concomitant]
     Indication: Infection prophylaxis
     Dosage: UNK (TAB)
     Route: 065
     Dates: start: 20250211
  8. ALTEPLASE [Concomitant]
     Active Substance: ALTEPLASE
     Indication: Multiple organ dysfunction syndrome
     Dosage: UNK
     Route: 065
     Dates: start: 20250916, end: 20250916
  9. ALTEPLASE [Concomitant]
     Active Substance: ALTEPLASE
     Dosage: UNK
     Route: 065
     Dates: start: 20250919, end: 20250919
  10. ALBUMIN HUMAN [Concomitant]
     Active Substance: ALBUMIN HUMAN
     Indication: Multiple organ dysfunction syndrome
     Dosage: UNK
     Route: 065
     Dates: start: 20250907, end: 20250909
  11. ALBUMIN HUMAN [Concomitant]
     Active Substance: ALBUMIN HUMAN
     Dosage: UNK
     Route: 065
     Dates: start: 20250911, end: 20250923
  12. AMBISOME [Concomitant]
     Active Substance: AMPHOTERICIN B
     Indication: Pneumonia
     Dosage: INJ
     Route: 065
     Dates: start: 20250904, end: 20250922
  13. AMOCLAN DUO [Concomitant]
     Indication: Sinusitis
     Dosage: UNK (TAB)
     Route: 065
     Dates: start: 20250707
  14. AROXOL [Concomitant]
     Indication: Prophylaxis
     Dosage: UNK
     Route: 065
     Dates: start: 20250917
  15. CINEZOLID [Concomitant]
     Indication: Pneumonia
     Dosage: UNK
     Route: 065
     Dates: start: 20250922, end: 20250922
  16. CODAEWON FORTE [Concomitant]
     Indication: Pneumonia
     Dosage: UNK
     Route: 065
     Dates: start: 20250903, end: 20250906
  17. COMBIFLEX PERI [Concomitant]
     Indication: Prophylaxis
     Dosage: UNK
     Route: 065
     Dates: start: 20250801, end: 20250804
  18. COMBIFLEX PERI [Concomitant]
     Indication: Prophylaxis
     Dosage: UNK
     Route: 065
     Dates: start: 20250817, end: 20250820
  19. COMBIFLEX PERI [Concomitant]
     Dosage: UNK
     Route: 065
     Dates: start: 20250908, end: 20250913
  20. COMPLEX PHAZYME [Concomitant]
     Indication: Prophylaxis
     Dosage: UNK
     Route: 065
     Dates: start: 20250904, end: 20250907
  21. HYDROCORTISONE SODIUM SUCCINATE [Concomitant]
     Active Substance: HYDROCORTISONE SODIUM SUCCINATE
     Indication: Dyspnoea exertional
     Dosage: UNK
     Route: 065
     Dates: start: 20250909, end: 20250922
  22. HYDROCORTISONE SODIUM SUCCINATE [Concomitant]
     Active Substance: HYDROCORTISONE SODIUM SUCCINATE
     Indication: Multiple organ dysfunction syndrome
     Dosage: UNK
     Route: 065
     Dates: start: 20250907, end: 20250908
  23. HYDROCORTISONE SODIUM SUCCINATE [Concomitant]
     Active Substance: HYDROCORTISONE SODIUM SUCCINATE
     Indication: Prophylaxis
     Dosage: UNK
     Route: 065
     Dates: start: 20250814, end: 20250814
  24. COUGH NOS [Concomitant]
     Active Substance: UNSPECIFIED INGREDIENT
     Indication: Pneumonia
     Dosage: UNK
     Route: 065
     Dates: start: 20250914, end: 20250917
  25. LEVOFLOXACIN [Concomitant]
     Active Substance: LEVOFLOXACIN
     Indication: Pneumonia
     Dosage: UNK UNK, QD
     Route: 065
     Dates: start: 20250805, end: 20250816
  26. LEVOFLOXACIN [Concomitant]
     Active Substance: LEVOFLOXACIN
     Indication: Sinusitis
     Dosage: UNK UNK, QD
     Route: 065
     Dates: start: 20250804, end: 20250804
  27. LEVOFLOXACIN [Concomitant]
     Active Substance: LEVOFLOXACIN
     Indication: Infection prophylaxis
     Dosage: UNK
     Route: 065
     Dates: start: 20250211
  28. LEVOFLOXACIN [Concomitant]
     Active Substance: LEVOFLOXACIN
     Dosage: UNK
     Route: 065
     Dates: start: 20250905, end: 20250918
  29. DEXTROSE [Concomitant]
     Active Substance: DEXTROSE MONOHYDRATE
     Indication: Prophylaxis against dehydration
     Dosage: UNK
     Route: 065
     Dates: start: 20250915
  30. Dulackhan [Concomitant]
     Indication: Constipation prophylaxis
     Dosage: UNK
     Route: 065
     Dates: start: 20250909, end: 20250912
  31. Dulcolax [Concomitant]
     Indication: Constipation prophylaxis
     Dosage: UNK
     Route: 065
     Dates: start: 20250910, end: 20250910
  32. ENCOVER [Concomitant]
     Indication: Prophylaxis
     Dosage: UNK
     Route: 065
     Dates: start: 20250818
  33. EPINEPHRINE [Concomitant]
     Active Substance: EPINEPHRINE
     Indication: Local anaesthesia
     Dosage: 0.1 %
     Route: 065
     Dates: start: 20250731, end: 20250731
  34. EPINEPHRINE [Concomitant]
     Active Substance: EPINEPHRINE
     Indication: Multiple organ dysfunction syndrome
     Dosage: UNK
     Route: 065
     Dates: start: 20250907, end: 20250908
  35. EPINEPHRINE\LIDOCAINE [Concomitant]
     Active Substance: EPINEPHRINE\LIDOCAINE
     Indication: Local anaesthesia
     Dosage: 1%
     Route: 065
     Dates: start: 20250731, end: 20250731
  36. FENTADUR [Concomitant]
     Indication: Headache
     Dosage: UNK (PATCH 25MCG/H)
     Route: 065
     Dates: start: 20250801, end: 20250801
  37. GASTER [Concomitant]
     Active Substance: FAMOTIDINE
     Indication: Gastritis prophylaxis
     Dosage: UNK
     Route: 065
     Dates: start: 20250914, end: 20250920
  38. Godex [Concomitant]
     Indication: Multiple organ dysfunction syndrome
     Dosage: UNK
     Route: 065
     Dates: start: 20250909, end: 20250913
  39. Godex [Concomitant]
     Indication: Prophylaxis
     Dosage: UNK
     Route: 065
     Dates: start: 20250906, end: 20250906
  40. HANLIM FENTANYL [Concomitant]
     Indication: Pain prophylaxis
     Dosage: UNK
     Route: 065
     Dates: start: 20250731, end: 20250731
  41. CALCIUM CHLORIDE\POTASSIUM CHLORIDE\SODIUM CHLORIDE\SODIUM LACTATE [Concomitant]
     Active Substance: CALCIUM CHLORIDE\POTASSIUM CHLORIDE\SODIUM CHLORIDE\SODIUM LACTATE
     Indication: Headache
     Dosage: UNK
     Route: 065
     Dates: start: 20250731, end: 20250731
  42. DILTIAZEM HYDROCHLORIDE [Concomitant]
     Active Substance: DILTIAZEM HYDROCHLORIDE
     Indication: Multiple organ dysfunction syndrome
     Dosage: UNK
     Route: 065
     Dates: start: 20250911, end: 20250911
  43. DILTIAZEM HYDROCHLORIDE [Concomitant]
     Active Substance: DILTIAZEM HYDROCHLORIDE
     Dosage: UNK
     Route: 065
     Dates: start: 20250914, end: 20250914
  44. DILTIAZEM HYDROCHLORIDE [Concomitant]
     Active Substance: DILTIAZEM HYDROCHLORIDE
     Dosage: UNK
     Route: 065
     Dates: start: 20250919, end: 20250919
  45. OXYCODONE HYDROCHLORIDE [Concomitant]
     Active Substance: OXYCODONE HYDROCHLORIDE
     Indication: Pain prophylaxis
     Dosage: UNK
     Route: 065
     Dates: start: 20250804, end: 20250818
  46. TEGOPRAZAN [Concomitant]
     Active Substance: TEGOPRAZAN
     Indication: Gastritis prophylaxis
     Dosage: UNK (TAB)
     Route: 065
     Dates: start: 20250723
  47. KETOROLAC TROMETHAMINE [Concomitant]
     Active Substance: KETOROLAC TROMETHAMINE
     Indication: Pain prophylaxis
     Dosage: UNK
     Route: 065
     Dates: start: 20250731, end: 20250731
  48. LASIX [Concomitant]
     Active Substance: FUROSEMIDE
     Indication: Prophylaxis
     Dosage: UNK
     Route: 065
     Dates: start: 20250730, end: 20250730
  49. LASIX [Concomitant]
     Active Substance: FUROSEMIDE
     Dosage: UNK
     Route: 065
     Dates: start: 20250904, end: 20250904
  50. LASIX [Concomitant]
     Active Substance: FUROSEMIDE
     Dosage: UNK
     Route: 065
     Dates: start: 20250905, end: 20250905
  51. LASIX [Concomitant]
     Active Substance: FUROSEMIDE
     Dosage: UNK
     Route: 065
     Dates: start: 20250907, end: 20250907
  52. LASIX [Concomitant]
     Active Substance: FUROSEMIDE
     Dosage: UNK
     Route: 065
     Dates: start: 20250909, end: 20250909
  53. LASIX [Concomitant]
     Active Substance: FUROSEMIDE
     Dosage: UNK
     Route: 065
     Dates: start: 20250910, end: 20250910
  54. LASIX [Concomitant]
     Active Substance: FUROSEMIDE
     Dosage: UNK
     Route: 065
     Dates: start: 20250911, end: 20250911
  55. LASIX [Concomitant]
     Active Substance: FUROSEMIDE
     Dosage: UNK
     Route: 065
     Dates: start: 20250916, end: 20250917
  56. LIDOCAINE [Concomitant]
     Active Substance: LIDOCAINE
     Indication: Local anaesthesia
     Dosage: 2 %
     Route: 065
     Dates: start: 20250731, end: 20250731
  57. MAXIPIME [Concomitant]
     Active Substance: CEFEPIME HYDROCHLORIDE
     Indication: Febrile neutropenia
     Dosage: UNK
     Route: 065
     Dates: start: 20250709, end: 20250710
  58. MAXIPIME [Concomitant]
     Active Substance: CEFEPIME HYDROCHLORIDE
     Dosage: UNK
     Route: 065
     Dates: start: 20250719, end: 20250719
  59. MAXIPIME [Concomitant]
     Active Substance: CEFEPIME HYDROCHLORIDE
     Dosage: UNK
     Route: 065
     Dates: start: 20250723, end: 20250727
  60. MAXIPIME [Concomitant]
     Active Substance: CEFEPIME HYDROCHLORIDE
     Dosage: UNK
     Route: 065
     Dates: start: 20250723, end: 20250804
  61. MAXIPIME [Concomitant]
     Active Substance: CEFEPIME HYDROCHLORIDE
     Dosage: UNK
     Route: 065
     Dates: start: 20250728, end: 20250804
  62. MAXIPIME [Concomitant]
     Active Substance: CEFEPIME HYDROCHLORIDE
     Dosage: UNK
     Route: 065
     Dates: start: 20250815, end: 20250815
  63. MEROPENEM [Concomitant]
     Active Substance: MEROPENEM
     Indication: Febrile neutropenia
     Dosage: UNK
     Route: 065
     Dates: start: 20250815, end: 20250815
  64. MEROPENEM [Concomitant]
     Active Substance: MEROPENEM
     Indication: Pneumonia
     Dosage: UNK
     Route: 065
     Dates: start: 20250903, end: 20250910
  65. MORPHINE SULFATE [Concomitant]
     Active Substance: MORPHINE SULFATE
     Indication: Headache
     Dosage: UNK
     Route: 065
     Dates: start: 20250731, end: 20250731
  66. MORPHINE SULFATE [Concomitant]
     Active Substance: MORPHINE SULFATE
     Indication: Mechanical ventilation
     Dosage: UNK
     Route: 065
     Dates: start: 20250817, end: 20250817
  67. MORPHINE SULFATE [Concomitant]
     Active Substance: MORPHINE SULFATE
     Indication: Pain prophylaxis
     Dosage: UNK
     Route: 065
     Dates: start: 20250801, end: 20250801
  68. MORPHINE SULFATE [Concomitant]
     Active Substance: MORPHINE SULFATE
     Dosage: UNK
     Route: 065
     Dates: start: 20250913, end: 20250915
  69. MOVIZOLO [Concomitant]
     Indication: Constipation prophylaxis
     Dosage: UNK
     Route: 065
     Dates: start: 20250910, end: 20250922
  70. ACETYLCYSTEINE [Concomitant]
     Active Substance: ACETYLCYSTEINE
     Indication: Pneumonia
     Dosage: UNK
     Route: 065
     Dates: start: 20250903, end: 20250906
  71. ACETYLCYSTEINE [Concomitant]
     Active Substance: ACETYLCYSTEINE
     Dosage: UNK
     Route: 065
     Dates: start: 20250918
  72. NAK200 [Concomitant]
     Indication: Multiple organ dysfunction syndrome
     Dosage: UNK
     Route: 065
     Dates: start: 20250910, end: 20250921
  73. NEPHRO [Concomitant]
     Indication: Multiple organ dysfunction syndrome
     Dosage: UNK
     Route: 065
     Dates: start: 20250910, end: 20250914
  74. NEPHRO [Concomitant]
     Dosage: UNK
     Route: 065
     Dates: start: 20250910, end: 20250922
  75. SODIUM CHLORIDE [Concomitant]
     Active Substance: SODIUM CHLORIDE
     Indication: Prophylaxis
     Dosage: UNK
     Route: 065
     Dates: start: 20250815, end: 20250818
  76. SODIUM CHLORIDE [Concomitant]
     Active Substance: SODIUM CHLORIDE
     Dosage: UNK
     Route: 065
     Dates: start: 20250903, end: 20250907
  77. Norpin [Concomitant]
     Indication: Multiple organ dysfunction syndrome
     Dosage: UNK
     Route: 065
     Dates: start: 20250907
  78. PANTOPRAZOLE SODIUM [Concomitant]
     Active Substance: PANTOPRAZOLE SODIUM
     Indication: Gastritis prophylaxis
     Dosage: UNK
     Route: 065
     Dates: start: 20250909, end: 20250912
  79. PARACAINE [Concomitant]
     Active Substance: PROPARACAINE HYDROCHLORIDE
     Indication: Vitreous haemorrhage
     Dosage: UNK (OPH SOLN 0.5%)
     Route: 047
     Dates: start: 20250317
  80. PENIRAMIN [Concomitant]
     Indication: Prophylaxis
     Dosage: UNK
     Route: 065
     Dates: start: 20250814, end: 20250814
  81. PLASMA SOLUTION A [Concomitant]
     Indication: Multiple organ dysfunction syndrome
     Dosage: UNK
     Route: 065
     Dates: start: 20250911, end: 20250911
  82. POTASSIUM CHLORIDE [Concomitant]
     Active Substance: POTASSIUM CHLORIDE
     Indication: Multiple organ dysfunction syndrome
     Dosage: UNK
     Route: 065
     Dates: start: 20250915, end: 20250915
  83. POTASSIUM CHLORIDE [Concomitant]
     Active Substance: POTASSIUM CHLORIDE
     Dosage: UNK
     Route: 065
     Dates: start: 20250919, end: 20250920
  84. PRECEDEX [Concomitant]
     Active Substance: DEXMEDETOMIDINE HYDROCHLORIDE
     Indication: Mechanical ventilation
     Dosage: UNK
     Route: 065
     Dates: start: 20250913, end: 20250915
  85. PYRIDOXINE [Concomitant]
     Active Substance: PYRIDOXINE
     Indication: Antibiotic prophylaxis
     Dosage: UNK (TAB)
     Route: 065
     Dates: start: 20250421
  86. REMIVA [Concomitant]
     Indication: Mechanical ventilation
     Dosage: UNK
     Route: 065
     Dates: start: 20250912, end: 20250912
  87. ELTROMBOPAG OLAMINE [Concomitant]
     Active Substance: ELTROMBOPAG OLAMINE
     Indication: Platelet count decreased
     Dosage: UNK (TAB)
     Route: 065
     Dates: start: 20250714
  88. SK ALBUMIN [Concomitant]
     Indication: Hypoalbuminaemia
     Dosage: UNK (20%)
     Route: 065
     Dates: start: 20250815, end: 20250815
  89. AMINO ACIDS\DEXTROSE\ELECTROLYTES NOS\SOYBEAN OIL [Concomitant]
     Active Substance: AMINO ACIDS\DEXTROSE\ELECTROLYTES NOS\SOYBEAN OIL
     Indication: Prophylaxis
     Dosage: UNK
     Route: 065
     Dates: start: 20250904, end: 20250908
  90. AMINO ACIDS\DEXTROSE\ELECTROLYTES NOS\SOYBEAN OIL [Concomitant]
     Active Substance: AMINO ACIDS\DEXTROSE\ELECTROLYTES NOS\SOYBEAN OIL
     Dosage: UNK
     Route: 065
     Dates: start: 20250914, end: 20250919
  91. DEXTROSE\SODIUM CHLORIDE [Concomitant]
     Active Substance: DEXTROSE\SODIUM CHLORIDE
     Indication: Prophylaxis against dehydration
     Dosage: UNK
     Route: 065
     Dates: start: 20250914, end: 20250914
  92. TAMBOCOR [Concomitant]
     Active Substance: FLECAINIDE ACETATE
     Indication: Multiple organ dysfunction syndrome
     Dosage: UNK
     Route: 065
     Dates: start: 20250919, end: 20250919
  93. VITAMINS [Concomitant]
     Active Substance: VITAMINS
     Indication: Prophylaxis
     Dosage: UNK
     Route: 065
     Dates: start: 20250801, end: 20250804
  94. VITAMINS [Concomitant]
     Active Substance: VITAMINS
     Indication: Prophylaxis
     Dosage: UNK
     Route: 065
     Dates: start: 20250817, end: 20250820
  95. VITAMINS [Concomitant]
     Active Substance: VITAMINS
     Dosage: UNK
     Route: 065
     Dates: start: 20250904, end: 20250919
  96. TEICONIN [Concomitant]
     Indication: Pneumonia
     Dosage: UNK
     Route: 065
     Dates: start: 20250904, end: 20250920
  97. TOCILIZUMAB [Concomitant]
     Active Substance: TOCILIZUMAB
     Indication: Follicular lymphoma
     Dosage: 8 MG/KG
     Route: 042
     Dates: start: 20250212
  98. Triam [Concomitant]
     Indication: Prophylaxis
     Dosage: UNK
     Route: 065
     Dates: start: 20250731, end: 20250731
  99. CEFTRIAXONE SODIUM [Concomitant]
     Active Substance: CEFTRIAXONE SODIUM
     Indication: Febrile neutropenia
     Dosage: UNK
     Route: 065
     Dates: start: 20250815, end: 20250815
  100. TRAMADOL HYDROCHLORIDE [Concomitant]
     Active Substance: TRAMADOL HYDROCHLORIDE
     Indication: Pain prophylaxis
     Dosage: UNK
     Route: 065
     Dates: start: 20250727, end: 20250727
  101. TRAMADOL HYDROCHLORIDE [Concomitant]
     Active Substance: TRAMADOL HYDROCHLORIDE
     Dosage: UNK
     Route: 065
     Dates: start: 20250729, end: 20250729
  102. TRAMADOL HYDROCHLORIDE [Concomitant]
     Active Substance: TRAMADOL HYDROCHLORIDE
     Dosage: UNK
     Route: 065
     Dates: start: 20250731, end: 20250731
  103. TRAMADOL HYDROCHLORIDE [Concomitant]
     Active Substance: TRAMADOL HYDROCHLORIDE
     Dosage: UNK
     Route: 065
     Dates: start: 20250801, end: 20250801
  104. TRAMADOL HYDROCHLORIDE [Concomitant]
     Active Substance: TRAMADOL HYDROCHLORIDE
     Dosage: UNK
     Route: 065
     Dates: start: 20250822
  105. TRAMADOL HYDROCHLORIDE [Concomitant]
     Active Substance: TRAMADOL HYDROCHLORIDE
     Indication: Headache
     Dosage: UNK (INJ)
     Route: 065
     Dates: start: 20250726, end: 20250726
  106. Tropherin [Concomitant]
     Indication: Vitreous haemorrhage
     Dosage: UNK (OPH SOLN)
     Route: 047
     Dates: start: 20250317
  107. URSODIOL [Concomitant]
     Active Substance: URSODIOL
     Indication: Multiple organ dysfunction syndrome
     Dosage: UNK
     Route: 065
     Dates: start: 20250909, end: 20250913
  108. URSODIOL [Concomitant]
     Active Substance: URSODIOL
     Indication: Prophylaxis
     Dosage: UNK
     Route: 065
     Dates: start: 20250906, end: 20250906
  109. VANCOMYCIN [Concomitant]
     Active Substance: VANCOMYCIN
     Indication: Febrile neutropenia
     Dosage: UNK
     Route: 065
     Dates: start: 20250815
  110. VASOPRESSIN [Concomitant]
     Active Substance: VASOPRESSIN
     Indication: Multiple organ dysfunction syndrome
     Dosage: UNK
     Route: 065
     Dates: start: 20250907, end: 20250908
  111. VASOPRESSIN [Concomitant]
     Active Substance: VASOPRESSIN
     Dosage: UNK
     Route: 065
     Dates: start: 20250911, end: 20250914
  112. VASOPRESSIN [Concomitant]
     Active Substance: VASOPRESSIN
     Dosage: UNK
     Route: 065
     Dates: start: 20250914, end: 20250914
  113. VASOPRESSIN [Concomitant]
     Active Substance: VASOPRESSIN
     Dosage: UNK
     Route: 065
     Dates: start: 20250923
  114. VFEND [Concomitant]
     Active Substance: VORICONAZOLE
     Indication: Sinusitis
     Dosage: UNK
     Route: 065
     Dates: start: 20250818
  115. VFEND [Concomitant]
     Active Substance: VORICONAZOLE
     Dosage: UNK
     Route: 065
     Dates: start: 20250918, end: 20250921
  116. ISONIAZID [Concomitant]
     Active Substance: ISONIAZID
     Indication: Antibiotic prophylaxis
     Dosage: UNK (TAB)
     Route: 065
     Dates: start: 20250421
  117. ZERBAXA [Concomitant]
     Active Substance: CEFTOLOZANE SULFATE\TAZOBACTAM SODIUM
     Indication: Pneumonia
     Dosage: UNK
     Route: 065
     Dates: start: 20250910, end: 20250922

REACTIONS (2)
  - Pneumonia [Fatal]
  - Febrile neutropenia [Not Recovered/Not Resolved]

NARRATIVE: CASE EVENT DATE: 20250816
